FAERS Safety Report 16119866 (Version 1)
Quarter: 2019Q1

REPORT INFORMATION
  Report Type: Spontaneous
  Country: BR (occurrence: BR)
  Receive Date: 20190326
  Receipt Date: 20190326
  Transmission Date: 20190418
  Serious: Yes (Other)
  Sender: FDA-Public Use
  Company Number: PHHY2019BR054568

PATIENT
  Sex: Female
  Weight: 61 kg

DRUGS (1)
  1. NEOTIAPIM [Suspect]
     Active Substance: QUETIAPINE
     Indication: INSOMNIA
     Dosage: 25 MG, QD (SPLITTED 100MG TABLET INTO FOUR PARTS)
     Route: 048

REACTIONS (6)
  - Dizziness [Recovered/Resolved]
  - Incorrect dosage administered [Recovered/Resolved]
  - Insomnia [Recovered/Resolved]
  - Drug effect incomplete [Recovered/Resolved]
  - Dysstasia [Recovered/Resolved]
  - Wrong technique in product usage process [Recovered/Resolved]
